FAERS Safety Report 4358152-8 (Version None)
Quarter: 2004Q2

REPORT INFORMATION
  Report Type: 
  Country: None (occurrence: None)
  Receive Date: 20040511
  Receipt Date: 20040430
  Transmission Date: 20050107
  Serious: Yes (Disabling)
  Sender: FDA-Public Use
  Company Number: NO-JNJFOC-20040406526

PATIENT
  Age: 56 Year
  Sex: Female

DRUGS (3)
  1. REMICADE [Suspect]
     Indication: MUSCULOSKELETAL PAIN
     Dosage: INTRAVENOUS
     Route: 042
     Dates: start: 20030114, end: 20030728
  2. VIOX (ROFECOXIB) [Concomitant]
  3. VITAMIN B12 [Concomitant]

REACTIONS (1)
  - SYSTEMIC LUPUS ERYTHEMATOSUS [None]
